FAERS Safety Report 7241470-3 (Version None)
Quarter: 2011Q1

REPORT INFORMATION
  Report Type: 
  Country: None (occurrence: None)
  Receive Date: 20110124
  Receipt Date: 20110111
  Transmission Date: 20110831
  Serious: Yes (Life-Threatening, Hospitalization)
  Sender: FDA-Public Use
  Company Number: GB-PFIZER INC-2011007837

PATIENT
  Age: 34 Year
  Sex: Male

DRUGS (7)
  1. ACETAMINOPHEN W/ CODEINE [Suspect]
  2. AMLODIPINE BESYLATE [Suspect]
  3. TEMAZEPAM [Suspect]
     Dosage: 120 MG, UNK
  4. PERINDOPRIL ERBUMINE [Suspect]
  5. CITALOPRAM HYDROBROMIDE [Suspect]
     Dosage: 240 MG, UNK
  6. DOXAZOSIN MESYLATE [Suspect]
  7. DIAZEPAM [Suspect]
     Dosage: 140 MG, UNK

REACTIONS (7)
  - OVERDOSE [None]
  - CRYSTALLURIA [None]
  - HYPOTENSION [None]
  - HYPOXIA [None]
  - RENAL FAILURE [None]
  - METABOLIC ACIDOSIS [None]
  - LOSS OF CONSCIOUSNESS [None]
